FAERS Safety Report 19699268 (Version 2)
Quarter: 2022Q3

REPORT INFORMATION
  Report Type: Spontaneous
  Country: US (occurrence: US)
  Receive Date: 20210813
  Receipt Date: 20220825
  Transmission Date: 20221026
  Serious: No
  Sender: FDA-Public Use
  Company Number: US-AMRYT PHARMACEUTICALS DAC-AEGR005122

PATIENT
  Age: 76 Year
  Sex: Male

DRUGS (32)
  1. JUXTAPID [Suspect]
     Active Substance: LOMITAPIDE MESYLATE
     Indication: Type IIa hyperlipidaemia
     Dosage: 20 MILLIGRAM, QDHS 2 HOURS AFTER DINNER
     Route: 048
     Dates: start: 20180201
  2. JUXTAPID [Suspect]
     Active Substance: LOMITAPIDE MESYLATE
     Indication: Hypercholesterolaemia
     Dosage: 1 MILLIGRAM, QD
     Route: 048
     Dates: start: 20210512
  3. JUXTAPID [Suspect]
     Active Substance: LOMITAPIDE MESYLATE
     Indication: Hypertriglyceridaemia
  4. JUXTAPID [Suspect]
     Active Substance: LOMITAPIDE MESYLATE
     Indication: Type IIa hyperlipidaemia
  5. ALPRAZOLAM [Concomitant]
     Active Substance: ALPRAZOLAM
     Indication: Anxiety
     Dosage: 0.5 MILLIGRAM, QDHS
     Route: 048
     Dates: start: 20190228
  6. AMLODIPINE BESYLATE [Concomitant]
     Active Substance: AMLODIPINE BESYLATE
     Indication: Hypertension
     Dosage: 5 MILLIGRAM, QDHS
     Route: 048
     Dates: start: 20190717
  7. ASPIRIN [Concomitant]
     Active Substance: ASPIRIN
     Indication: Product used for unknown indication
     Dosage: 81 MILLIGRAM, QD
     Dates: start: 20190530
  8. CARBIDOPA\LEVODOPA [Concomitant]
     Active Substance: CARBIDOPA\LEVODOPA
     Indication: Restless legs syndrome
     Dosage: 25-100 MILLIGRAM, QID
     Route: 048
     Dates: start: 20210121
  9. CARVEDILOL [Concomitant]
     Active Substance: CARVEDILOL
     Indication: Hypertension
     Dosage: 6.25 MILLIGRAM, BID WITH MEALS
     Route: 048
     Dates: start: 20111006
  10. CHLORTHALIDONE [Concomitant]
     Active Substance: CHLORTHALIDONE
     Indication: Hypertension
     Dosage: 25 MILLIGRAM, QD
     Route: 048
     Dates: start: 20190403
  11. CILOSTAZOL [Concomitant]
     Active Substance: CILOSTAZOL
     Indication: Product used for unknown indication
     Dosage: 50 MILLIGRAM, QD
     Route: 048
     Dates: start: 20110922
  12. DOXAZOSIN MESYLATE [Concomitant]
     Active Substance: DOXAZOSIN MESYLATE
     Indication: Urinary hesitation
     Dosage: 8 MILLIGRAM, QDHS
     Route: 048
     Dates: start: 20190909
  13. DOXAZOSIN MESYLATE [Concomitant]
     Active Substance: DOXAZOSIN MESYLATE
     Indication: Benign prostatic hyperplasia
  14. FISH OIL [Concomitant]
     Active Substance: FISH OIL
     Indication: Hyperlipidaemia
     Dosage: 1000 MILLIGRAM, QD
     Route: 048
     Dates: start: 19000101
  15. FLUTICASONE PROPIONATE [Concomitant]
     Active Substance: FLUTICASONE PROPIONATE
     Indication: Product used for unknown indication
     Dosage: 2 SPRAY IN EACH NOSTRIL, QD
     Route: 045
     Dates: start: 20121030
  16. GABAPENTIN [Concomitant]
     Active Substance: GABAPENTIN
     Indication: Product used for unknown indication
     Dosage: 100 MILLIGRAM, BID
     Route: 048
     Dates: start: 20130930
  17. LOSARTAN POTASSIUM [Concomitant]
     Active Substance: LOSARTAN POTASSIUM
     Indication: Hypertension
     Dosage: 100 MILLIGRAM, QD
     Route: 048
     Dates: start: 20190228
  18. SERTRALINE HYDROCHLORIDE [Concomitant]
     Active Substance: SERTRALINE HYDROCHLORIDE
     Indication: Hypersomnia
     Dosage: 200 MILLIGRAM, QDHS
     Route: 048
     Dates: start: 20190909
  19. SPIRONOLACTONE [Concomitant]
     Active Substance: SPIRONOLACTONE
     Indication: Hypertension
     Dosage: 25 MILLIGRAM, QD
     Route: 048
     Dates: start: 20210324
  20. TYLENOL ARTHRITIS PAIN [Concomitant]
     Active Substance: ACETAMINOPHEN
     Indication: Product used for unknown indication
     Dosage: 2-3 TABLET, PRN
  21. UNSPECIFIED INGREDIENT [Concomitant]
     Active Substance: UNSPECIFIED INGREDIENT
     Indication: Product used for unknown indication
  22. AMITRIPTYLINE [Concomitant]
     Active Substance: AMITRIPTYLINE
     Indication: Insomnia
     Dosage: 25 MILLIGRAM, QDHS
     Dates: start: 20200609
  23. AMITRIPTYLINE [Concomitant]
     Active Substance: AMITRIPTYLINE
     Indication: Pain
  24. AMITRIPTYLINE [Concomitant]
     Active Substance: AMITRIPTYLINE
     Indication: Depression
  25. VITAMIN E-400 [Concomitant]
     Indication: Product used for unknown indication
     Dosage: UNK
     Dates: start: 20210512
  26. SUPER OMEGA 3 [FISH OIL] [Concomitant]
     Indication: Product used for unknown indication
  27. CHOLESTYRAMINE LIGHT [Concomitant]
     Active Substance: CHOLESTYRAMINE
     Indication: Product used for unknown indication
     Dosage: 4 GRAM, PLACE CONTENTS OF 1 LEVEL SCOOPFUL IN GLASS ADD 6 OUNCES OF WATER, STIR TO UNIFORM CONSISTEN
     Route: 048
     Dates: start: 20210617
  28. MIRTAZAPINE [Concomitant]
     Active Substance: MIRTAZAPINE
     Indication: Product used for unknown indication
     Dosage: 15 MILLIGRAM, QD HS
     Dates: start: 20210617
  29. PREDNISONE [Concomitant]
     Active Substance: PREDNISONE
     Indication: Injection site rash
     Dosage: 20 MILLIGRAM, QD IN THE MORNING
     Route: 048
     Dates: start: 20200917
  30. PREDNISONE [Concomitant]
     Active Substance: PREDNISONE
     Indication: Product used for unknown indication
  31. FISH OIL [Concomitant]
     Active Substance: FISH OIL
     Indication: Product used for unknown indication
     Dosage: UNK
     Dates: start: 20210512
  32. MELATONIN [Concomitant]
     Active Substance: MELATONIN
     Indication: Product used for unknown indication

REACTIONS (4)
  - Injection site rash [Recovered/Resolved]
  - Diarrhoea [Unknown]
  - Product dose omission issue [Unknown]
  - Diet noncompliance [Unknown]

NARRATIVE: CASE EVENT DATE: 20210302
